FAERS Safety Report 7968859-9 (Version None)
Quarter: 2011Q4

REPORT INFORMATION
  Report Type: 
  Country: None (occurrence: None)
  Receive Date: 20111209
  Receipt Date: 20111205
  Transmission Date: 20120403
  Serious: Yes (Life-Threatening)
  Sender: FDA-Public Use
  Company Number: PHHY2011GB106003

PATIENT
  Age: 92 Year
  Sex: Male
  Weight: 62 kg

DRUGS (10)
  1. ERYTHROMYCIN [Concomitant]
     Indication: BRONCHITIS
     Dosage: 2 DF, UNK
  2. LEVOTHYROXINE SODIUM [Concomitant]
     Dosage: 100 MG, UNK
  3. ECHINACEA [Concomitant]
     Dosage: 15 ML, UNK
  4. SAW PALMETTO [Concomitant]
     Dosage: 1 DF, UNK
  5. TAMSULOSIN HYDROCHLORIDE [Suspect]
     Indication: BLADDER OBSTRUCTION
     Dosage: 400 MG, UNK
     Route: 048
     Dates: start: 20111118
  6. GINGER [Concomitant]
     Dosage: 2.5 ML, UNK
  7. HAWTHORN [Concomitant]
     Dosage: 2.5 ML, UNK
  8. YARROW [Concomitant]
     Dosage: 2.5 ML, UNK
  9. GOLD SEAL ANTISEPTIC POWDER [Concomitant]
     Dosage: 150 MG, UNK
  10. MULTI-VITAMIN [Concomitant]

REACTIONS (3)
  - CARDIAC DISORDER [None]
  - INCONTINENCE [None]
  - EMOTIONAL DISTRESS [None]
